FAERS Safety Report 15495596 (Version 5)
Quarter: 2019Q1

REPORT INFORMATION
  Report Type: Report from Study
  Country: US (occurrence: US)
  Receive Date: 20181013
  Receipt Date: 20190305
  Transmission Date: 20190417
  Serious: Yes (Hospitalization, Other)
  Sender: FDA-Public Use
  Company Number: US-MALLINCKRODT-T201804239

PATIENT
  Age: 62 Year
  Sex: Female

DRUGS (7)
  1. REPOSITORY CORTICOTROPIN INJECTION [Suspect]
     Active Substance: CORTICOTROPIN
     Indication: RHEUMATOID ARTHRITIS
     Dosage: 80 UNITS/1 ML, EVERY OTHER DAY
     Route: 065
     Dates: start: 20180914, end: 2018
  2. REPOSITORY CORTICOTROPIN INJECTION [Suspect]
     Active Substance: CORTICOTROPIN
     Dosage: 80 UNITS/1 ML, EVERY 3 DAYS / EVERY 72 HOURS
     Route: 058
     Dates: end: 20190201
  3. LEVAQUIN [Suspect]
     Active Substance: LEVOFLOXACIN
     Indication: PRODUCT USED FOR UNKNOWN INDICATION
     Dosage: UNK
     Route: 065
  4. PREDNISONE. [Concomitant]
     Active Substance: PREDNISONE
     Dosage: 5 MG, UNK
     Route: 065
  5. PREDNISONE. [Concomitant]
     Active Substance: PREDNISONE
     Indication: INFLAMMATION
     Dosage: 5 MG, UNK
     Route: 065
     Dates: end: 201809
  6. REPOSITORY CORTICOTROPIN INJECTION [Suspect]
     Active Substance: CORTICOTROPIN
     Dosage: 80 UNITS/1 ML, EVERY OTHER DAY
     Route: 058
     Dates: start: 2018
  7. PREDNISONE. [Concomitant]
     Active Substance: PREDNISONE
     Dosage: 20 MG, UNK
     Route: 065
     Dates: start: 20180930

REACTIONS (16)
  - Surgery [Recovering/Resolving]
  - Drug hypersensitivity [Unknown]
  - Pneumonia aspiration [Recovering/Resolving]
  - Pyrexia [Recovering/Resolving]
  - Retching [Unknown]
  - Cough [Unknown]
  - Stress [Not Recovered/Not Resolved]
  - Rheumatoid arthritis [Not Recovered/Not Resolved]
  - Chest pain [Not Recovered/Not Resolved]
  - Oesophageal stenosis [Recovering/Resolving]
  - Infection [Unknown]
  - Treatment noncompliance [Not Recovered/Not Resolved]
  - Memory impairment [Not Recovered/Not Resolved]
  - Product dose omission [Not Recovered/Not Resolved]
  - Swelling face [Not Recovered/Not Resolved]
  - Urinary tract infection [Recovering/Resolving]

NARRATIVE: CASE EVENT DATE: 2018
